FAERS Safety Report 14120881 (Version 2)
Quarter: 2018Q2

REPORT INFORMATION
  Report Type: Spontaneous
  Country: JP (occurrence: JP)
  Receive Date: 20171024
  Receipt Date: 20180522
  Transmission Date: 20180711
  Serious: Yes (Death)
  Sender: FDA-Public Use
  Company Number: JP-BAYER-2017-011919

PATIENT
  Age: 76 Year
  Sex: Male
  Weight: 41.5 kg

DRUGS (13)
  1. XOFIGO [Suspect]
     Active Substance: RADIUM RA-223 DICHLORIDE
     Indication: HORMONE-REFRACTORY PROSTATE CANCER
     Dosage: 1DF, ONCE, 55 KBG/KG
     Route: 042
     Dates: start: 20161018, end: 20161018
  2. XOFIGO [Suspect]
     Active Substance: RADIUM RA-223 DICHLORIDE
     Indication: METASTASES TO BONE
     Dosage: 1DF, ONCE, 55 KBG/KG
     Route: 042
     Dates: start: 20161115, end: 20161115
  3. CALFINA AMEL [Concomitant]
     Dosage: DAILY DOSE 2 DF
     Route: 048
     Dates: start: 20161012
  4. XOFIGO [Suspect]
     Active Substance: RADIUM RA-223 DICHLORIDE
     Indication: HORMONE-REFRACTORY PROSTATE CANCER
     Dosage: 1DF, ONCE, 55 KBG/KG
     Route: 042
     Dates: start: 20170110, end: 20170110
  5. MAGMITT [Concomitant]
     Active Substance: MAGNESIUM OXIDE
     Dosage: DAILY DOSE 3 DF
     Route: 048
     Dates: start: 20161012
  6. XOFIGO [Suspect]
     Active Substance: RADIUM RA-223 DICHLORIDE
     Indication: HORMONE-REFRACTORY PROSTATE CANCER
     Dosage: 1DF, ONCE, 55 KBG/KG
     Route: 042
     Dates: start: 20170307, end: 20170307
  7. LOXOPROFEN SODIUM [Concomitant]
     Active Substance: LOXOPROFEN SODIUM
     Dosage: DAILY DOSE 3 DF
     Route: 048
     Dates: start: 20161012
  8. REBAMIPIDE [Concomitant]
     Active Substance: REBAMIPIDE
     Dosage: DAILY DOSE 3 DF
     Route: 048
     Dates: start: 20161012
  9. PREDONINE [Concomitant]
     Active Substance: PREDNISOLONE
     Dosage: DAILY DOSE 1 DF
     Route: 048
     Dates: start: 20161012
  10. XOFIGO [Suspect]
     Active Substance: RADIUM RA-223 DICHLORIDE
     Indication: HORMONE-REFRACTORY PROSTATE CANCER
     Dosage: 1DF, ONCE, 55 KBG/KG
     Route: 042
     Dates: start: 20161213, end: 20161213
  11. XOFIGO [Suspect]
     Active Substance: RADIUM RA-223 DICHLORIDE
     Indication: HORMONE-REFRACTORY PROSTATE CANCER
     Dosage: 1DF, ONCE, 55 KBG/KG
     Route: 042
     Dates: start: 20170207, end: 20170207
  12. OMEPRAZOLE. [Concomitant]
     Active Substance: OMEPRAZOLE
     Dosage: DAILY DOSE 1 DF
     Route: 048
     Dates: start: 20161012
  13. CALCIUM LACTATE [Concomitant]
     Active Substance: CALCIUM LACTATE
     Dosage: DAILY DOSE 2 DF
     Route: 048

REACTIONS (5)
  - Hormone-refractory prostate cancer [Fatal]
  - Fatigue [Recovered/Resolved]
  - Prostatic specific antigen increased [Not Recovered/Not Resolved]
  - Myalgia [Recovered/Resolved]
  - Mouth haemorrhage [Recovered/Resolved]

NARRATIVE: CASE EVENT DATE: 20161102
